FAERS Safety Report 25511518 (Version 1)
Quarter: 2025Q3

REPORT INFORMATION
  Report Type: Spontaneous
  Country: US (occurrence: US)
  Receive Date: 20250703
  Receipt Date: 20250703
  Transmission Date: 20251020
  Serious: No
  Sender: RADIUS PHARM
  Company Number: US-RADIUS HEALTH INC.-2024US007142

PATIENT
  Sex: Male

DRUGS (1)
  1. TYMLOS [Suspect]
     Active Substance: ABALOPARATIDE
     Indication: Senile osteoporosis
     Route: 058

REACTIONS (5)
  - Dizziness postural [Unknown]
  - Respiratory disorder [Recovering/Resolving]
  - Headache [Not Recovered/Not Resolved]
  - Gait disturbance [Unknown]
  - Therapy interrupted [Unknown]
